FAERS Safety Report 8575503-9 (Version None)
Quarter: 2012Q3

REPORT INFORMATION
  Report Type: 
  Country: None (occurrence: None)
  Receive Date: 20120807
  Receipt Date: 20120802
  Transmission Date: 20120928
  Serious: Yes (Life-Threatening, Hospitalization)
  Sender: FDA-Public Use
  Company Number: US-ELI_LILLY_AND_COMPANY-US201207000784

PATIENT
  Sex: Female

DRUGS (5)
  1. LEVOTHYROXINE SODIUM [Concomitant]
     Dosage: 25 UG, UNK
     Dates: end: 20120627
  2. LYRICA [Concomitant]
     Dosage: UNK
  3. PLAQUENIL [Concomitant]
     Dosage: UNK
  4. FORTEO [Suspect]
     Indication: OSTEOPOROSIS
     Dosage: 20 UG, QD
     Dates: start: 20111001
  5. LEVOTHYROXINE SODIUM [Concomitant]
     Dosage: 75 UG, UNK
     Dates: start: 20120628

REACTIONS (23)
  - SWELLING FACE [None]
  - MALAISE [None]
  - GAIT DISTURBANCE [None]
  - PAIN [None]
  - CARDIAC ARREST [None]
  - SYSTEMIC LUPUS ERYTHEMATOSUS [None]
  - CONTUSION [None]
  - HYPOPHAGIA [None]
  - MOBILITY DECREASED [None]
  - NECK PAIN [None]
  - HYPOKINESIA [None]
  - TONGUE OEDEMA [None]
  - HYPOAESTHESIA [None]
  - SKIN DISORDER [None]
  - HYPERSENSITIVITY [None]
  - PERIPHERAL COLDNESS [None]
  - IMPAIRED HEALING [None]
  - FOOT FRACTURE [None]
  - ANURIA [None]
  - PHARYNGEAL OEDEMA [None]
  - DYSPNOEA [None]
  - SKIN DISCOLOURATION [None]
  - FALL [None]
